FAERS Safety Report 11104898 (Version 2)
Quarter: 2015Q2

REPORT INFORMATION
  Report Type: Spontaneous
  Country: US (occurrence: US)
  Receive Date: 20150511
  Receipt Date: 20150521
  Transmission Date: 20150821
  Serious: Yes (Hospitalization)
  Sender: FDA-Public Use
  Company Number: US-ABBVIE-15P-163-1388841-00

PATIENT
  Age: 58 Year
  Sex: Male

DRUGS (6)
  1. VIEKIRA PAK [Suspect]
     Active Substance: DASABUVIR\OMBITASVIR\PARITAPREVIR\RITONAVIR
     Indication: HEPATITIS C
     Route: 048
     Dates: start: 20150311, end: 201504
  2. BENICAR [Concomitant]
     Active Substance: OLMESARTAN MEDOXOMIL
     Indication: PRODUCT USED FOR UNKNOWN INDICATION
  3. NORCO [Concomitant]
     Active Substance: ACETAMINOPHEN\HYDROCODONE BITARTRATE
     Indication: PRODUCT USED FOR UNKNOWN INDICATION
  4. LYRICA [Concomitant]
     Active Substance: PREGABALIN
     Indication: PRODUCT USED FOR UNKNOWN INDICATION
  5. WELLBUTRIN [Concomitant]
     Active Substance: BUPROPION HYDROCHLORIDE
     Indication: PRODUCT USED FOR UNKNOWN INDICATION
  6. MODERIBA [Suspect]
     Active Substance: RIBAVIRIN
     Indication: HEPATITIS C
     Dosage: UNKNOWN DOSAGE
     Route: 048
     Dates: start: 20150311, end: 201504

REACTIONS (11)
  - Diarrhoea [Recovered/Resolved]
  - Peripheral swelling [Recovering/Resolving]
  - Mouth ulceration [Recovering/Resolving]
  - Red blood cell sedimentation rate increased [Recovered/Resolved]
  - Leukocytosis [Recovering/Resolving]
  - Nausea [Recovering/Resolving]
  - Lethargy [Recovering/Resolving]
  - White blood cell count increased [Recovered/Resolved]
  - Dehydration [Recovered/Resolved]
  - Asthenia [Recovering/Resolving]
  - Blood urea increased [Recovering/Resolving]

NARRATIVE: CASE EVENT DATE: 201504
